FAERS Safety Report 22153229 (Version 1)
Quarter: 2023Q1

REPORT INFORMATION
  Report Type: Spontaneous
  Country: IN (occurrence: IN)
  Receive Date: 20230329
  Receipt Date: 20230329
  Transmission Date: 20230417
  Serious: Yes (Death, Other)
  Sender: FDA-Public Use
  Company Number: IN-JNJFOC-20230366750

PATIENT

DRUGS (2)
  1. EVICEL [Suspect]
     Active Substance: FIBRINOGEN HUMAN\THROMBIN HUMAN
     Indication: Haemostasis
     Route: 061
  2. APROTININ\CALCIUM CHLORIDE\FIBRINOGEN HUMAN\FACTOR XIII CONCENTRATE (H [Suspect]
     Active Substance: APROTININ\CALCIUM CHLORIDE\FIBRINOGEN HUMAN\FACTOR XIII CONCENTRATE (HUMAN)\THROMBIN
     Indication: Haemostasis
     Route: 061

REACTIONS (11)
  - Cardiogenic shock [Fatal]
  - Coma [Fatal]
  - Post procedural haemorrhage [Fatal]
  - Multiple organ dysfunction syndrome [Fatal]
  - Aortic valve incompetence [Unknown]
  - Delayed recovery from anaesthesia [Unknown]
  - Paraplegia [Unknown]
  - Cerebrovascular accident [Unknown]
  - Renal ischaemia [Unknown]
  - Hypoperfusion [Unknown]
  - Drug ineffective [Unknown]
